FAERS Safety Report 17772457 (Version 1)
Quarter: 2020Q2

REPORT INFORMATION
  Report Type: Report from Study
  Country: EG (occurrence: EG)
  Receive Date: 20200512
  Receipt Date: 20200512
  Transmission Date: 20200714
  Serious: Yes (Other)
  Sender: FDA-Public Use
  Company Number: NVSC2020EG126821

PATIENT
  Age: 9 Year
  Weight: 48 kg

DRUGS (5)
  1. OMNITROPE [Suspect]
     Active Substance: SOMATROPIN
     Indication: PRECOCIOUS PUBERTY
     Dosage: UNK
     Route: 058
     Dates: start: 20180528, end: 201910
  2. IRON [Concomitant]
     Active Substance: IRON
     Indication: ANAEMIA
     Dosage: UNK
     Route: 065
     Dates: start: 2019, end: 202002
  3. ZOLADEX [Concomitant]
     Active Substance: GOSERELIN ACETATE
     Indication: PRECOCIOUS PUBERTY
     Dosage: ONCE/75 DAY (SYRINGE)
     Route: 065
     Dates: start: 201710, end: 202003
  4. ASCAZIN [Concomitant]
     Indication: VITAMIN SUPPLEMENTATION
     Dosage: 1 DF, QD
     Route: 065
     Dates: start: 201805, end: 202003
  5. VIDROP [Concomitant]
     Indication: VITAMIN SUPPLEMENTATION
     Dosage: 1 ML, QD
     Route: 065
     Dates: start: 201805, end: 202003

REACTIONS (3)
  - Posture abnormal [Recovered/Resolved]
  - Drug ineffective [Not Recovered/Not Resolved]
  - Anaemia [Recovered/Resolved]

NARRATIVE: CASE EVENT DATE: 201905
